FAERS Safety Report 13547286 (Version 1)
Quarter: 2017Q2

REPORT INFORMATION
  Report Type: Spontaneous
  Country: CH (occurrence: CH)
  Receive Date: 20170515
  Receipt Date: 20170515
  Transmission Date: 20170830
  Serious: Yes (Hospitalization)
  Sender: FDA-Public Use
  Company Number: CH-ABBVIE-17K-151-1973333-00

PATIENT
  Age: 27 Year
  Sex: Male
  Weight: 75 kg

DRUGS (8)
  1. DORMICUM (NITRAZEPAM) [Interacting]
     Active Substance: NITRAZEPAM
     Indication: STATUS EPILEPTICUS
     Route: 045
     Dates: start: 20170409, end: 20170410
  2. VALIUM [Interacting]
     Active Substance: DIAZEPAM
     Indication: STATUS EPILEPTICUS
     Route: 041
     Dates: start: 20170409
  3. REYATAZ [Interacting]
     Active Substance: ATAZANAVIR SULFATE
     Indication: HIV INFECTION
     Route: 048
  4. SOLU-MEDROL [Interacting]
     Active Substance: METHYLPREDNISOLONE SODIUM SUCCINATE
     Indication: HYPERSENSITIVITY
     Route: 065
  5. NORVIR [Suspect]
     Active Substance: RITONAVIR
     Indication: HIV INFECTION
     Route: 048
     Dates: start: 201008
  6. TRUVADA [Interacting]
     Active Substance: EMTRICITABINE\TENOFOVIR DISOPROXIL FUMARATE
     Indication: HIV INFECTION
     Dosage: TENOFOVIR245MG / EMTRICITABIN 200MG, 1 IN 1 D
     Route: 065
     Dates: start: 201008
  7. ZANTAC [Interacting]
     Active Substance: RANITIDINE HYDROCHLORIDE
     Indication: HYPERSENSITIVITY
     Route: 065
     Dates: start: 20170409
  8. TAVEGYL [Interacting]
     Active Substance: CLEMASTINE FUMARATE
     Indication: HYPERSENSITIVITY
     Route: 065
     Dates: start: 20170409

REACTIONS (15)
  - Status epilepticus [Recovered/Resolved]
  - Generalised tonic-clonic seizure [Recovered/Resolved]
  - Eyelid oedema [Recovered/Resolved]
  - Urticaria [Recovered/Resolved]
  - Hypersensitivity [Recovered/Resolved]
  - Partial seizures [Recovered/Resolved]
  - Hypersomnia [Recovered/Resolved]
  - Blood lactic acid increased [Unknown]
  - Dyskinesia [Recovered/Resolved]
  - Hypotension [Recovered/Resolved]
  - Pruritus [Recovered/Resolved]
  - Distributive shock [Recovered/Resolved]
  - Epilepsy [Recovered/Resolved]
  - Metabolic acidosis [Recovered/Resolved]
  - Flushing [Recovered/Resolved]

NARRATIVE: CASE EVENT DATE: 20170409
